FAERS Safety Report 22601520 (Version 3)
Quarter: 2023Q2

REPORT INFORMATION
  Report Type: Spontaneous
  Country: JP (occurrence: JP)
  Receive Date: 20230614
  Receipt Date: 20230630
  Transmission Date: 20230722
  Serious: Yes (Other)
  Sender: FDA-Public Use
  Company Number: JP-Eisai-202302361_LEN-HCC_P_1

PATIENT
  Age: 66 Year
  Sex: Male

DRUGS (1)
  1. LENVATINIB [Suspect]
     Active Substance: LENVATINIB
     Indication: Hepatocellular carcinoma
     Dosage: DOSE AND FREQUENCY UNKNOWN
     Route: 048

REACTIONS (1)
  - Fournier^s gangrene [Recovering/Resolving]
